FAERS Safety Report 4674554-4 (Version None)
Quarter: 2005Q2

REPORT INFORMATION
  Report Type: 
  Country: None (occurrence: None)
  Receive Date: 20050526
  Receipt Date: 20050429
  Transmission Date: 20051028
  Serious: Yes (Other)
  Sender: FDA-Public Use
  Company Number: US-MERCK-0505USA00040

PATIENT
  Age: 66 Year
  Sex: Female

DRUGS (22)
  1. VIOXX [Suspect]
     Indication: PAIN
     Route: 048
  2. CRESTOR [Concomitant]
     Route: 048
     Dates: end: 20041126
  3. CLOBETASOL PROPIONATE [Concomitant]
     Route: 065
  4. VITAMIN E [Concomitant]
     Route: 048
  5. MAGNESIUM (UNSPECIFIED) AND CALCIUM (UNSPECIFIED) [Concomitant]
     Route: 065
  6. ASPIRIN [Concomitant]
     Route: 048
  7. CYANOCOBALAMIN [Concomitant]
     Route: 048
  8. ASCORBIC ACID [Concomitant]
     Route: 048
  9. ACETIC ACID [Concomitant]
     Route: 065
  10. TRIAMCINOLONE [Concomitant]
     Indication: RASH
     Route: 065
  11. DIOVAN HCT [Concomitant]
     Route: 048
  12. FLONASE [Concomitant]
     Route: 055
  13. ZYRTEC [Concomitant]
     Route: 048
  14. ESTRADIOL [Concomitant]
     Route: 048
  15. HUMULIN 70/30 [Concomitant]
     Route: 058
  16. HUMULIN N [Concomitant]
     Route: 058
  17. BENADRYL [Concomitant]
     Route: 048
  18. ULTRACET [Concomitant]
     Route: 048
  19. BEXTRA [Concomitant]
     Indication: PAIN
     Route: 048
  20. LESCOL [Concomitant]
     Route: 048
  21. ADVAIR DISKUS 100/50 [Concomitant]
     Route: 055
     Dates: start: 20050224
  22. PROVERA [Concomitant]
     Route: 048

REACTIONS (16)
  - ASTHMA [None]
  - BLINDNESS UNILATERAL [None]
  - COUGH [None]
  - DIZZINESS [None]
  - FATIGUE [None]
  - HYPOAESTHESIA [None]
  - INSOMNIA [None]
  - MUSCLE CONTRACTIONS INVOLUNTARY [None]
  - MYALGIA [None]
  - NECK PAIN [None]
  - NEURALGIA [None]
  - PAIN IN EXTREMITY [None]
  - SHOULDER PAIN [None]
  - UPPER RESPIRATORY TRACT INFECTION [None]
  - VITREOUS HAEMORRHAGE [None]
  - WEIGHT INCREASED [None]
